FAERS Safety Report 6355036-0 (Version None)
Quarter: 2009Q3

REPORT INFORMATION
  Report Type: 
  Country: None (occurrence: None)
  Receive Date: 20090914
  Receipt Date: 20090902
  Transmission Date: 20100115
  Serious: Yes (Hospitalization)
  Sender: FDA-Public Use
  Company Number: B0592583A

PATIENT
  Sex: Male

DRUGS (10)
  1. CLARITHROMYCIN [Suspect]
     Route: 048
     Dates: start: 20090727, end: 20090729
  2. AMOXICILLIN [Suspect]
     Route: 048
     Dates: start: 20090727, end: 20090729
  3. ATORVASTATIN CALCIUM [Suspect]
     Indication: DRUG USE FOR UNKNOWN INDICATION
     Route: 048
     Dates: end: 20090730
  4. LANSOPRAZOLE [Suspect]
     Route: 048
     Dates: start: 20090727, end: 20090729
  5. VOGLIBOSE [Concomitant]
     Route: 048
  6. CLOPIDOGREL [Concomitant]
     Route: 048
  7. ASPIRIN [Concomitant]
     Dosage: 100MG PER DAY
     Route: 048
  8. ISOSORBIDE MONONITRATE [Concomitant]
     Dosage: 20MG TWICE PER DAY
     Route: 048
  9. CARVEDILOL [Concomitant]
     Dosage: 5MG PER DAY
     Route: 048
  10. FAMOTIDINE [Concomitant]
     Dosage: 10MG PER DAY
     Route: 048

REACTIONS (3)
  - DRUG INTERACTION [None]
  - HYPOGLYCAEMIA [None]
  - RENAL FAILURE [None]
